FAERS Safety Report 7607060-5 (Version None)
Quarter: 2011Q3

REPORT INFORMATION
  Report Type: 
  Country: None (occurrence: None)
  Receive Date: 20110713
  Receipt Date: 20110628
  Transmission Date: 20111222
  Serious: Yes (Hospitalization)
  Sender: FDA-Public Use
  Company Number: AU-JNJFOC-20110612622

PATIENT
  Sex: Male

DRUGS (2)
  1. PSEUDOEPHEDRINE HCL [Suspect]
     Indication: PRODUCT USED FOR UNKNOWN INDICATION
     Route: 065
  2. PSEUDOEPHEDRINE HCL [Suspect]
     Route: 065

REACTIONS (5)
  - HAEMORRHAGIC STROKE [None]
  - HYPERTENSION [None]
  - DRUG DEPENDENCE [None]
  - NEPHROPATHY [None]
  - INTENTIONAL DRUG MISUSE [None]
